FAERS Safety Report 6110325-X (Version None)
Quarter: 2009Q1

REPORT INFORMATION
  Report Type: 
  Country: None (occurrence: None)
  Receive Date: 20090310
  Receipt Date: 20090226
  Transmission Date: 20090719
  Serious: Yes (Death, Other)
  Sender: FDA-Public Use
  Company Number: IN-PFIZER INC-2008078668

PATIENT

DRUGS (1)
  1. SUTENT [Suspect]
     Indication: METASTATIC RENAL CELL CARCINOMA
     Dosage: OD EVERYDAY
     Route: 048

REACTIONS (8)
  - DEATH [None]
  - DYSPNOEA [None]
  - HAEMORRHAGE [None]
  - HYPOTHYROIDISM [None]
  - PALMAR-PLANTAR ERYTHRODYSAESTHESIA SYNDROME [None]
  - PLEURAL EFFUSION [None]
  - SCROTAL ERYTHEMA [None]
  - SKIN ULCER [None]
